FAERS Safety Report 7101873-4 (Version None)
Quarter: 2010Q4

REPORT INFORMATION
  Report Type: 
  Country: None (occurrence: None)
  Receive Date: 20101115
  Receipt Date: 20101110
  Transmission Date: 20110411
  Serious: Yes (Life-Threatening)
  Sender: FDA-Public Use
  Company Number: JP-SANOFI-AVENTIS-2010SA068827

PATIENT
  Age: 72 Year
  Sex: Male

DRUGS (1)
  1. OXALIPLATIN [Suspect]

REACTIONS (1)
  - STRESS CARDIOMYOPATHY [None]
